FAERS Safety Report 5930667-8 (Version None)
Quarter: 2008Q4

REPORT INFORMATION
  Report Type: 
  Country: None (occurrence: None)
  Receive Date: 20081022
  Receipt Date: 20080107
  Transmission Date: 20090506
  Serious: Yes (Hospitalization)
  Sender: FDA-Public Use
  Company Number: CL000402008

PATIENT
  Age: 95 Year
  Sex: Female

DRUGS (7)
  1. CIPROFLOXACIN, TAZOCIN [Suspect]
     Dates: start: 20080611, end: 20080615
  2. BUMETANIDE [Concomitant]
  3. CHLORPHENIRAMINE [Concomitant]
  4. FERROUS SULFATE TAB [Concomitant]
  5. GLICLAZIDE [Concomitant]
  6. OMEPRAZOLE [Concomitant]
  7. QUININE SULPHATE [Concomitant]

REACTIONS (2)
  - CLOSTRIDIUM DIFFICILE COLITIS [None]
  - LIVER FUNCTION TEST ABNORMAL [None]
